FAERS Safety Report 6821008-2 (Version None)
Quarter: 2010Q3

REPORT INFORMATION
  Report Type: 
  Country: None (occurrence: None)
  Receive Date: 20100707
  Receipt Date: 20071121
  Transmission Date: 20110219
  Serious: No
  Sender: FDA-Public Use
  Company Number: US-PFIZER INC-2007100841

PATIENT
  Sex: Female

DRUGS (6)
  1. ZOLOFT [Suspect]
  2. XANAX [Concomitant]
  3. PREVACID [Concomitant]
  4. FIORICET [Concomitant]
  5. HYDROCHLOROTHIAZIDE [Concomitant]
  6. LISINOPRIL [Concomitant]

REACTIONS (1)
  - LIBIDO DECREASED [None]
